FAERS Safety Report 4909385-0 (Version None)
Quarter: 2006Q1

REPORT INFORMATION
  Report Type: 
  Country: None (occurrence: None)
  Receive Date: 20060213
  Receipt Date: 20060202
  Transmission Date: 20060701
  Serious: Yes (Other)
  Sender: FDA-Public Use
  Company Number: FR-JNJFOC-20051204576

PATIENT
  Sex: Female

DRUGS (4)
  1. KETODERM [Suspect]
     Route: 061
     Dates: start: 20051212, end: 20051215
  2. DUPHASTON [Concomitant]
  3. ESTREVA [Concomitant]
  4. VOLTAREN [Concomitant]
     Dates: start: 20051212

REACTIONS (3)
  - FACE OEDEMA [None]
  - PRURITUS [None]
  - RASH ERYTHEMATOUS [None]
